FAERS Safety Report 15835884 (Version 1)
Quarter: 2019Q1

REPORT INFORMATION
  Report Type: Spontaneous
  Country: PT (occurrence: PT)
  Receive Date: 20190117
  Receipt Date: 20190117
  Transmission Date: 20190417
  Serious: Yes (Hospitalization)
  Sender: FDA-Public Use
  Company Number: PT-SA-2019SA007803

PATIENT
  Age: 69 Year
  Sex: Male

DRUGS (1)
  1. BCG FOR IMMUNOTHERAPY [Suspect]
     Active Substance: BACILLUS CALMETTE-GUERIN ANTIGEN, UNSPECIFIED SUBSTRAIN
     Indication: BLADDER CANCER
     Dosage: UNK
     Route: 043

REACTIONS (8)
  - Ocular hyperaemia [Recovering/Resolving]
  - Arthritis reactive [Recovering/Resolving]
  - Physical disability [Recovering/Resolving]
  - Polyarthritis [Recovering/Resolving]
  - Pyrexia [Recovering/Resolving]
  - Conjunctivitis [Recovering/Resolving]
  - Dysuria [Recovering/Resolving]
  - Flushing [Recovering/Resolving]
